FAERS Safety Report 16603147 (Version 7)
Quarter: 2020Q1

REPORT INFORMATION
  Report Type: Report from Study
  Country: TW (occurrence: TW)
  Receive Date: 20190721
  Receipt Date: 20200316
  Transmission Date: 20200409
  Serious: Yes (Death)
  Sender: FDA-Public Use
  Company Number: PHHO2019TW007455

PATIENT
  Age: 59 Year
  Sex: Male
  Weight: 58 kg

DRUGS (26)
  1. MEDROXYPROGESTERONE [Concomitant]
     Active Substance: MEDROXYPROGESTERONE
     Indication: NON-SMALL CELL LUNG CANCER
     Dosage: UNK
     Route: 065
     Dates: start: 20190617, end: 20190712
  2. DIPHENHYDRAMINE. [Concomitant]
     Active Substance: DIPHENHYDRAMINE
     Indication: PROPHYLAXIS
     Dosage: UNK
     Route: 065
     Dates: start: 20190711, end: 20190711
  3. FAMOTIDINE. [Concomitant]
     Active Substance: FAMOTIDINE
     Dosage: UNK
     Route: 065
     Dates: start: 20190531, end: 20190709
  4. PROMERAN [Concomitant]
     Indication: GASTRIC ULCER
     Dosage: UNK
     Route: 065
     Dates: start: 20190712
  5. DEXAMETHASONE. [Concomitant]
     Active Substance: DEXAMETHASONE
     Indication: PROPHYLAXIS
     Dosage: UNK
     Route: 065
     Dates: start: 20190711, end: 20190711
  6. POLYMIGEL [Concomitant]
     Indication: GASTRIC ULCER
     Dosage: UNK
     Route: 065
     Dates: start: 20190712
  7. BISACODYL. [Concomitant]
     Active Substance: BISACODYL
     Indication: CONSTIPATION
     Dosage: UNK
     Route: 065
     Dates: start: 20190705, end: 20190705
  8. COMPARATOR CARBOPLATIN [Suspect]
     Active Substance: CARBOPLATIN
     Indication: NON-SMALL CELL LUNG CANCER
     Dosage: 533 MG, Q3W
     Route: 042
     Dates: start: 20190711
  9. DIPHENHYDRAMINE. [Concomitant]
     Active Substance: DIPHENHYDRAMINE
     Indication: PLEURAL EFFUSION
     Dosage: UNK
     Route: 065
     Dates: start: 20190629, end: 20190629
  10. FAMOTIDINE. [Concomitant]
     Active Substance: FAMOTIDINE
     Indication: GASTRIC ULCER
     Dosage: UNK
     Route: 065
     Dates: start: 20190617, end: 20190709
  11. BRICANYL [Concomitant]
     Active Substance: TERBUTALINE SULFATE
     Indication: DYSPNOEA
     Dosage: UNK
     Route: 065
     Dates: start: 20190629, end: 20190629
  12. ALOXI [Concomitant]
     Active Substance: PALONOSETRON HYDROCHLORIDE
     Indication: PROPHYLAXIS
     Dosage: UNK
     Route: 065
     Dates: start: 20190711, end: 20190711
  13. OXETHAZAINE [Concomitant]
     Active Substance: OXETHAZAINE
     Indication: GASTRIC ULCER
     Dosage: UNK
     Route: 065
     Dates: start: 20190712
  14. CANAKINUMAB. [Suspect]
     Active Substance: CANAKINUMAB
     Indication: NON-SMALL CELL LUNG CANCER
     Dosage: UNK
     Route: 058
     Dates: start: 20190711
  15. COMPARATOR PEMBROLIZUMAB [Suspect]
     Active Substance: PEMBROLIZUMAB
     Indication: NON-SMALL CELL LUNG CANCER
     Dosage: 200 MG, Q3W
     Route: 042
     Dates: start: 20190711
  16. SENNAPUR [Concomitant]
     Dosage: UNK
     Route: 065
     Dates: start: 20190630, end: 20190704
  17. TRAMADOL. [Concomitant]
     Active Substance: TRAMADOL
     Dosage: UNK
     Route: 065
     Dates: start: 20190630
  18. SENNAPUR [Concomitant]
     Indication: CONSTIPATION
     Dosage: UNK
     Route: 065
     Dates: start: 20190617, end: 20190626
  19. BRICANYL [Concomitant]
     Active Substance: TERBUTALINE SULFATE
     Indication: PLEURAL EFFUSION
  20. PRIMPERAN [Concomitant]
     Active Substance: METOCLOPRAMIDE HYDROCHLORIDE
     Indication: PROPHYLAXIS
     Dosage: UNK
     Route: 065
     Dates: start: 20190711, end: 20190711
  21. TRAMADOL. [Concomitant]
     Active Substance: TRAMADOL
     Indication: CHEST PAIN
     Dosage: UNK
     Route: 065
     Dates: start: 20190612, end: 20190626
  22. COMPARATOR PEMETREXED [Suspect]
     Active Substance: PEMETREXED DISODIUM
     Indication: NON-SMALL CELL LUNG CANCER
     Dosage: 820 MG, Q3W
     Route: 042
     Dates: start: 20190711
  23. ALBUTEIN [Concomitant]
     Active Substance: ALBUMIN HUMAN
     Indication: HYPOALBUMINAEMIA
     Dosage: UNK
     Route: 065
     Dates: start: 20190709, end: 20190711
  24. PANAGESIC [Concomitant]
     Indication: GASTRIC ULCER
     Dosage: UNK
     Route: 065
     Dates: start: 20190626, end: 20190709
  25. SENNAPUR [Concomitant]
     Dosage: UNK
     Route: 065
     Dates: start: 20190707
  26. PIPERACILLIN. [Concomitant]
     Active Substance: PIPERACILLIN SODIUM
     Indication: PROPHYLAXIS
     Dosage: UNK
     Route: 065
     Dates: start: 20190629, end: 20190709

REACTIONS (1)
  - Sudden death [Fatal]

NARRATIVE: CASE EVENT DATE: 20190716
